FAERS Safety Report 4563302-4 (Version None)
Quarter: 2005Q1

REPORT INFORMATION
  Report Type: 
  Country: None (occurrence: None)
  Receive Date: 20050128
  Receipt Date: 20031211
  Transmission Date: 20050727
  Serious: Yes (Hospitalization, Other)
  Sender: FDA-Public Use
  Company Number: S03-USA-05003-01

PATIENT
  Age: 42 Year
  Sex: Female

DRUGS (2)
  1. WELLBUTRIN [Suspect]
     Dosage: 150MG PER DAY
     Dates: start: 20031116, end: 20031126
  2. CELEXA [Suspect]
     Indication: DEPRESSION
     Dosage: 20MG PER DAY
     Route: 048
     Dates: start: 20021101

REACTIONS (7)
  - CONTUSION [None]
  - CONVULSION [None]
  - DISORIENTATION [None]
  - FALL [None]
  - PAROSMIA [None]
  - TOOTH FRACTURE [None]
  - WEIGHT INCREASED [None]
